FAERS Safety Report 12561371 (Version 1)
Quarter: 2016Q3

REPORT INFORMATION
  Report Type: Spontaneous
  Country: CZ (occurrence: CZ)
  Receive Date: 20160715
  Receipt Date: 20160715
  Transmission Date: 20161109
  Serious: Yes (Life-Threatening, Other)
  Sender: FDA-Public Use
  Company Number: CZ-B. BRAUN MEDICAL INC.-1055100

PATIENT
  Age: 44 Year
  Sex: Female
  Weight: 74 kg

DRUGS (8)
  1. SODIUM CHLORIDE INJECTIONS USP 0264-7800-00 0264-7800-10 [Suspect]
     Active Substance: SODIUM CHLORIDE
     Indication: GENERAL ANAESTHESIA
     Dates: start: 20160616, end: 20160616
  2. PARACETAMOLUM [Suspect]
     Active Substance: ACETAMINOPHEN
     Route: 054
     Dates: start: 20160616, end: 20160616
  3. PROPOFOL. [Suspect]
     Active Substance: PROPOFOL
     Route: 042
     Dates: start: 20160616, end: 20160616
  4. METAMIZOLUM NATRICUM MONOHYDRICUM [Suspect]
     Active Substance: DIPYRONE
     Dates: start: 20160616, end: 20160616
  5. ATROPINI SULFAS MONOHYDRICUS [Suspect]
     Active Substance: ATROPINE SULFATE
     Dates: start: 20160617, end: 20160617
  6. DIAZEPAMUM [Suspect]
     Active Substance: DIAZEPAM
     Dates: start: 20160616, end: 20160616
  7. MIDAZOLAMUM [Suspect]
     Active Substance: MIDAZOLAM\MIDAZOLAM HYDROCHLORIDE
     Dates: start: 20160617, end: 20160617
  8. ALFENTANILUM [Suspect]
     Active Substance: ALFENTANIL
     Route: 042
     Dates: start: 20160616, end: 20160616

REACTIONS (1)
  - Disseminated intravascular coagulation [None]
